FAERS Safety Report 6706735-X (Version None)
Quarter: 2010Q2

REPORT INFORMATION
  Report Type: 
  Country: None (occurrence: None)
  Receive Date: 20100503
  Receipt Date: 20100319
  Transmission Date: 20101027
  Serious: Yes (Other)
  Sender: FDA-Public Use
  Company Number: US-BAXTER-2009BH018219

PATIENT
  Age: 48 Year
  Sex: Male
  Weight: 66 kg

DRUGS (31)
  1. HEPARIN SODIUM INJECTION [Suspect]
     Indication: INTRAVENOUS CATHETER MANAGEMENT
     Route: 042
     Dates: start: 20071129
  2. HEPARIN SODIUM INJECTION [Suspect]
     Indication: CATHETER PLACEMENT
     Route: 042
     Dates: start: 20071129
  3. HEPARIN SODIUM INJECTION [Suspect]
     Route: 042
     Dates: start: 20071114, end: 20071127
  4. HEPARIN SODIUM INJECTION [Suspect]
     Route: 042
     Dates: start: 20071114, end: 20071127
  5. HEPARIN SODIUM INJECTION [Suspect]
     Route: 042
     Dates: start: 20080202, end: 20080228
  6. HEPARIN SODIUM INJECTION [Suspect]
     Route: 042
     Dates: start: 20080202, end: 20080228
  7. HEPARIN SODIUM INJECTION [Suspect]
     Route: 065
     Dates: start: 20071019, end: 20071019
  8. HEPARIN SODIUM INJECTION [Suspect]
     Route: 065
     Dates: start: 20071019, end: 20071019
  9. HEPARIN SODIUM INJECTION [Suspect]
     Route: 065
     Dates: start: 20071020, end: 20071020
  10. HEPARIN SODIUM INJECTION [Suspect]
     Route: 065
     Dates: start: 20071020, end: 20071020
  11. HEPARIN SODIUM INJECTION [Suspect]
     Route: 065
     Dates: start: 20071007, end: 20071027
  12. HEPARIN SODIUM INJECTION [Suspect]
     Route: 065
     Dates: start: 20071007, end: 20071027
  13. HEPARIN SODIUM INJECTION [Suspect]
     Route: 042
     Dates: start: 20071118, end: 20071119
  14. HEPARIN SODIUM INJECTION [Suspect]
     Route: 042
     Dates: start: 20071118, end: 20071119
  15. HEPARIN SODIUM INJECTION [Suspect]
     Route: 042
     Dates: start: 20071223, end: 20080111
  16. HEPARIN SODIUM INJECTION [Suspect]
     Route: 042
     Dates: start: 20071223, end: 20080111
  17. HEPARIN SODIUM INJECTION [Suspect]
     Route: 042
     Dates: start: 20080120, end: 20080228
  18. HEPARIN SODIUM INJECTION [Suspect]
     Route: 042
     Dates: start: 20080120, end: 20080228
  19. HEPARIN SODIUM INJECTION [Suspect]
     Route: 042
     Dates: start: 20080131, end: 20080131
  20. HEPARIN SODIUM INJECTION [Suspect]
     Route: 042
     Dates: start: 20080131, end: 20080131
  21. HEPARIN SODIUM INJECTION [Suspect]
     Route: 042
     Dates: start: 20080228, end: 20080228
  22. HEPARIN SODIUM INJECTION [Suspect]
     Route: 042
     Dates: start: 20080228, end: 20080228
  23. HEPARIN SODIUM INJECTION [Suspect]
     Indication: DRUG USE FOR UNKNOWN INDICATION
     Route: 042
     Dates: start: 20071130, end: 20080311
  24. HEPARIN SODIUM INJECTION [Suspect]
     Route: 042
     Dates: start: 20071130, end: 20080311
  25. HEPARIN SODIUM INJECTION [Suspect]
     Route: 042
     Dates: start: 20071130, end: 20080311
  26. POTASSIUM CHLORIDE [Concomitant]
     Indication: DRUG USE FOR UNKNOWN INDICATION
     Route: 065
  27. LIPITOR [Concomitant]
     Indication: DRUG USE FOR UNKNOWN INDICATION
     Route: 065
  28. PANTOPRAZOLE [Concomitant]
     Indication: DRUG USE FOR UNKNOWN INDICATION
     Route: 065
  29. REGLAN [Concomitant]
     Indication: DRUG USE FOR UNKNOWN INDICATION
     Route: 065
  30. DEMEROL [Concomitant]
     Indication: DRUG USE FOR UNKNOWN INDICATION
     Route: 065
  31. ZOFRAN [Concomitant]
     Indication: DRUG USE FOR UNKNOWN INDICATION
     Route: 065

REACTIONS (50)
  - ABDOMINAL PAIN [None]
  - ANAEMIA [None]
  - ASTHENIA [None]
  - CANDIDIASIS [None]
  - CHILLS [None]
  - CITROBACTER INFECTION [None]
  - CONSTIPATION [None]
  - DECREASED APPETITE [None]
  - DISORIENTATION [None]
  - DIZZINESS [None]
  - DYSPNOEA [None]
  - DYSURIA [None]
  - EXTRAVASATION [None]
  - FUNGAEMIA [None]
  - FUNGAL INFECTION [None]
  - GASTRITIS ATROPHIC [None]
  - GASTROINTESTINAL INFLAMMATION [None]
  - GASTROINTESTINAL PERFORATION [None]
  - HAEMOPTYSIS [None]
  - HYPERCALCAEMIA [None]
  - HYPERGLYCAEMIA [None]
  - HYPOKINESIA [None]
  - HYPOTENSION [None]
  - HYPOXIA [None]
  - IMMOBILE [None]
  - INSOMNIA [None]
  - JOINT SWELLING [None]
  - LETHARGY [None]
  - LEUKOPENIA [None]
  - LIP BLISTER [None]
  - MALNUTRITION [None]
  - MULTI-ORGAN FAILURE [None]
  - NAUSEA [None]
  - NIGHT SWEATS [None]
  - OEDEMA PERIPHERAL [None]
  - OESOPHAGEAL CANDIDIASIS [None]
  - PANCREATIC PSEUDOCYST [None]
  - PANCREATITIS CHRONIC [None]
  - PERITONEAL ADHESIONS [None]
  - PLEURAL EFFUSION [None]
  - PNEUMONIA [None]
  - PYREXIA [None]
  - RESPIRATORY FAILURE [None]
  - SENSORY LOSS [None]
  - SEPSIS [None]
  - SPEECH DISORDER [None]
  - STAPHYLOCOCCAL INFECTION [None]
  - UNEVALUABLE EVENT [None]
  - VOMITING [None]
  - WEIGHT DECREASED [None]
